FAERS Safety Report 9659554 (Version 1)
Quarter: 2013Q4

REPORT INFORMATION
  Report Type: Report from Study
  Country: US (occurrence: US)
  Receive Date: 20131031
  Receipt Date: 20131031
  Transmission Date: 20140711
  Serious: Yes (Other)
  Sender: FDA-Public Use
  Company Number: US-ELI_LILLY_AND_COMPANY-US201310007156

PATIENT
  Sex: Male

DRUGS (1)
  1. TESTOSTERONE SOLUTION (LY900011) [Suspect]
     Indication: PRODUCT USED FOR UNKNOWN INDICATION
     Dosage: UNK, UNKNOWN
     Route: 065

REACTIONS (5)
  - Weight increased [Unknown]
  - Joint swelling [Unknown]
  - Oedema peripheral [Unknown]
  - Sleep disorder [Unknown]
  - Respiratory disorder [Unknown]
